FAERS Safety Report 17753049 (Version 1)
Quarter: 2020Q2

REPORT INFORMATION
  Report Type: Report from Study
  Country: AR (occurrence: AR)
  Receive Date: 20200506
  Receipt Date: 20200506
  Transmission Date: 20200714
  Serious: Yes (Hospitalization)
  Sender: FDA-Public Use
  Company Number: NVSC2020AR111098

PATIENT
  Sex: Female

DRUGS (1)
  1. COSENTYX [Suspect]
     Active Substance: SECUKINUMAB
     Indication: PSORIASIS
     Dosage: 300 MG, QMO
     Route: 065
     Dates: start: 20191209

REACTIONS (4)
  - Localised infection [Recovering/Resolving]
  - Thrombosis [Recovering/Resolving]
  - Pain [Recovering/Resolving]
  - Psoriasis [Not Recovered/Not Resolved]
